FAERS Safety Report 12392726 (Version 2)
Quarter: 2016Q3

REPORT INFORMATION
  Report Type: Spontaneous
  Country: JP (occurrence: JP)
  Receive Date: 20160523
  Receipt Date: 20160813
  Transmission Date: 20161109
  Serious: Yes (Other)
  Sender: FDA-Public Use
  Company Number: JP-ACCORD-040742

PATIENT
  Age: 78 Year
  Sex: Male

DRUGS (4)
  1. EPIRUBICIN [Suspect]
     Active Substance: EPIRUBICIN
     Indication: RENAL CELL CARCINOMA
  2. VINBLASTINE [Suspect]
     Active Substance: VINBLASTINE
     Indication: RENAL CELL CARCINOMA
  3. METHOTREXATE. [Suspect]
     Active Substance: METHOTREXATE
     Indication: RENAL CELL CARCINOMA
  4. CARBOPLATIN. [Suspect]
     Active Substance: CARBOPLATIN
     Indication: RENAL CELL CARCINOMA

REACTIONS (1)
  - Major depression [Unknown]
